FAERS Safety Report 5446908-X (Version None)
Quarter: 2007Q3

REPORT INFORMATION
  Report Type: 
  Country: None (occurrence: None)
  Receive Date: 20070813
  Receipt Date: 20070126
  Transmission Date: 20080115
  Serious: Yes (Hospitalization)
  Sender: FDA-Public Use
  Company Number: 2007-153746-NL

PATIENT
  Age: 82 Year
  Sex: Female
  Weight: 41 kg

DRUGS (8)
  1. MIRTAZAPINE [Suspect]
  2. ARICEPT [Suspect]
     Indication: DEMENTIA ALZHEIMER'S TYPE
     Dosage: 5 MG DAILY ORAL
     Route: 048
     Dates: start: 20051101, end: 20060901
  3. ARICEPT [Suspect]
     Indication: DEMENTIA ALZHEIMER'S TYPE
     Dosage: 10 MG DAILY ORAL
     Route: 048
     Dates: start: 20060901, end: 20061101
  4. ARICEPT [Suspect]
     Indication: DEMENTIA ALZHEIMER'S TYPE
     Dosage: 20 MG DAILY ORAL
     Route: 048
     Dates: start: 20061101, end: 20061201
  5. NAMENDA [Suspect]
     Dosage: 10 MG DAILY ORAL
     Route: 048
  6. NAMENDA [Suspect]
     Dosage: 20 MG DAILY ORAL
     Route: 048
  7. RISPERDAL [Suspect]
  8. EFFEXOR [Suspect]

REACTIONS (1)
  - AGITATION [None]
